FAERS Safety Report 23544476 (Version 1)
Quarter: 2024Q1

REPORT INFORMATION
  Report Type: Spontaneous
  Country: US (occurrence: None)
  Receive Date: 20240217
  Receipt Date: 20240217
  Transmission Date: 20240410
  Serious: No
  Sender: FDA-Public Use
  Company Number: None

PATIENT
  Age: 72 Year
  Sex: Female
  Weight: 54 kg

DRUGS (4)
  1. RECLAST [Suspect]
     Active Substance: ZOLEDRONIC ACID
     Indication: Osteoporosis
     Dates: start: 20231206, end: 20231206
  2. AZATHIOPRINE [Concomitant]
     Active Substance: AZATHIOPRINE
  3. PENTASA [Concomitant]
     Active Substance: MESALAMINE
  4. VITAMIN D [Concomitant]
     Active Substance: VITAMIN D NOS

REACTIONS (5)
  - Infusion related reaction [None]
  - Skin reaction [None]
  - Psoriasis [None]
  - Eczema [None]
  - Lichenoid keratosis [None]

NARRATIVE: CASE EVENT DATE: 20231206
